FAERS Safety Report 6735626-3 (Version None)
Quarter: 2010Q2

REPORT INFORMATION
  Report Type: 
  Country: None (occurrence: None)
  Receive Date: 20100521
  Receipt Date: 20100511
  Transmission Date: 20101027
  Serious: Yes (Other)
  Sender: FDA-Public Use
  Company Number: PL-JNJFOC-20100503355

PATIENT
  Age: 10 Year
  Sex: Female
  Weight: 26 kg

DRUGS (3)
  1. REMICADE [Suspect]
     Indication: CROHN'S DISEASE
     Dosage: 10TH INFUSION
     Route: 042
  2. REMICADE [Suspect]
     Dosage: 9 DOSES ON UNKNOWN DATES
     Route: 042
  3. HYDROCORTISONE [Concomitant]
     Indication: PREMEDICATION

REACTIONS (4)
  - ANXIETY [None]
  - DYSPNOEA [None]
  - ERYTHEMA [None]
  - INFUSION RELATED REACTION [None]
